FAERS Safety Report 4368955-1 (Version None)
Quarter: 2004Q2

REPORT INFORMATION
  Report Type: 
  Country: None (occurrence: None)
  Receive Date: 20040527
  Receipt Date: 20040512
  Transmission Date: 20050107
  Serious: Yes (Other)
  Sender: FDA-Public Use
  Company Number: USA040567334

PATIENT
  Age: 79 Year
  Sex: Female

DRUGS (4)
  1. FORTEO [Suspect]
     Indication: OSTEOPOROSIS
     Dosage: 20 UG DAY
     Dates: start: 20030624, end: 20030721
  2. ACIPHEX [Concomitant]
  3. CALCIUM [Concomitant]
  4. MULTI-VITAMIN [Concomitant]

REACTIONS (10)
  - BACK INJURY [None]
  - BREAST PROSTHESIS USER [None]
  - FAILURE OF IMPLANT [None]
  - FALL [None]
  - HEAD INJURY [None]
  - INJECTION SITE REACTION [None]
  - LOSS OF CONSCIOUSNESS [None]
  - PHARMACEUTICAL PRODUCT COMPLAINT [None]
  - RASH PAPULAR [None]
  - SPINAL COMPRESSION FRACTURE [None]
